FAERS Safety Report 24907601 (Version 1)
Quarter: 2025Q1

REPORT INFORMATION
  Report Type: Spontaneous
  Country: CN (occurrence: CN)
  Receive Date: 20250131
  Receipt Date: 20250131
  Transmission Date: 20250408
  Serious: Yes (Life-Threatening)
  Sender: CSL BEHRING
  Company Number: CN-BEH-2025193285

PATIENT
  Age: 61 Year
  Sex: Male
  Weight: 75 kg

DRUGS (1)
  1. ALBUMIN HUMAN [Suspect]
     Active Substance: ALBUMIN HUMAN
     Indication: Nutritional supplementation
     Dosage: 20 MG, QD
     Route: 041
     Dates: start: 20250104, end: 20250106

REACTIONS (3)
  - Rash [Recovered/Resolved]
  - Heart rate increased [Recovered/Resolved]
  - Face oedema [Recovered/Resolved]

NARRATIVE: CASE EVENT DATE: 20250106
